FAERS Safety Report 4625713-8 (Version None)
Quarter: 2005Q1

REPORT INFORMATION
  Report Type: 
  Country: None (occurrence: None)
  Receive Date: 20050330
  Receipt Date: 20050321
  Transmission Date: 20050727
  Serious: Yes (Life-Threatening, Hospitalization, Other)
  Sender: FDA-Public Use
  Company Number: 2004-12-1121

PATIENT
  Age: 24 Year
  Sex: Male
  Weight: 94 kg

DRUGS (14)
  1. TEMODAL [Suspect]
     Indication: ASTROCYTOMA
     Dosage: 315 MG* ORAL
     Route: 048
     Dates: start: 20040614, end: 20041201
  2. TEMODAL [Suspect]
     Indication: ASTROCYTOMA
     Dosage: 315MG X 5DAYS ORAL
     Route: 048
     Dates: start: 20040614, end: 20040618
  3. TEMODAL [Suspect]
     Indication: ASTROCYTOMA
     Dosage: 420MG X 5DAYS  ORAL
     Route: 048
     Dates: start: 20040712, end: 20040716
  4. TEMODAL [Suspect]
     Indication: ASTROCYTOMA
     Dosage: 400MG X 5DAYS ORAL
     Route: 048
     Dates: start: 20040906, end: 20040910
  5. TEMODAL [Suspect]
     Indication: ASTROCYTOMA
     Dosage: 400MG X 5DAYS ORAL
     Route: 048
     Dates: start: 20041030, end: 20041103
  6. TEMODAL [Suspect]
     Indication: ASTROCYTOMA
     Dosage: ORAL
     Route: 048
     Dates: start: 20040101, end: 20040101
  7. TEMODAL [Suspect]
     Indication: ASTROCYTOMA
     Dosage: ORAL
     Route: 048
     Dates: start: 20041201, end: 20041201
  8. DEXAMETHASONE [Concomitant]
  9. PANTOPRAZOLE SODIUM [Concomitant]
  10. GRAVOL TAB [Concomitant]
  11. TYLENOL W/ CODEINE NO. 3 [Concomitant]
  12. ALDACTONE [Concomitant]
  13. SEPTRA [Concomitant]
  14. TOPAMAX [Concomitant]

REACTIONS (14)
  - ALANINE AMINOTRANSFERASE INCREASED [None]
  - BLOOD ALKALINE PHOSPHATASE INCREASED [None]
  - COMA [None]
  - CONVULSION [None]
  - HEADACHE [None]
  - HYDROCEPHALUS [None]
  - LIVER DISORDER [None]
  - POST PROCEDURAL NAUSEA [None]
  - POST PROCEDURAL VOMITING [None]
  - PULMONARY EMBOLISM [None]
  - SHUNT OCCLUSION [None]
  - SOMNOLENCE [None]
  - VENTRICULOPERITONEAL SHUNT MALFUNCTION [None]
  - WHITE BLOOD CELL COUNT ABNORMAL [None]
